FAERS Safety Report 12649244 (Version 1)
Quarter: 2016Q3

REPORT INFORMATION
  Report Type: Spontaneous
  Country: US (occurrence: US)
  Receive Date: 20160812
  Receipt Date: 20160812
  Transmission Date: 20161109
  Serious: No
  Sender: FDA-Public Use
  Company Number: US-DEPOMED, INC.-US-2016DEP009859

PATIENT

DRUGS (1)
  1. ZIPSOR [Suspect]
     Active Substance: DICLOFENAC POTASSIUM
     Indication: INFLAMMATION
     Dosage: 25 MG, UNK
     Route: 065
     Dates: start: 20160525

REACTIONS (3)
  - Abdominal pain upper [Not Recovered/Not Resolved]
  - Vomiting [Unknown]
  - Tremor [Unknown]

NARRATIVE: CASE EVENT DATE: 20160526
